FAERS Safety Report 13861448 (Version 3)
Quarter: 2017Q4

REPORT INFORMATION
  Report Type: Spontaneous
  Country: IE (occurrence: IE)
  Receive Date: 20170811
  Receipt Date: 20171006
  Transmission Date: 20180320
  Serious: Yes (Death, Hospitalization)
  Sender: FDA-Public Use
  Company Number: PHFR2017IE006550

PATIENT
  Age: 38 Year
  Sex: Male
  Weight: 55.7 kg

DRUGS (1)
  1. ENTRESTO [Suspect]
     Active Substance: SACUBITRIL\VALSARTAN
     Indication: PRODUCT USED FOR UNKNOWN INDICATION
     Dosage: UNK
     Route: 065

REACTIONS (4)
  - Aortic stenosis [Unknown]
  - Cardiogenic shock [Fatal]
  - Venous stenosis [Unknown]
  - Hypotension [Unknown]

NARRATIVE: CASE EVENT DATE: 20170504
